FAERS Safety Report 4693814-4 (Version None)
Quarter: 2005Q2

REPORT INFORMATION
  Report Type: 
  Country: None (occurrence: None)
  Receive Date: 20050616
  Receipt Date: 20050531
  Transmission Date: 20051028
  Serious: Yes (Life-Threatening, Hospitalization)
  Sender: FDA-Public Use
  Company Number: 2005JP001202

PATIENT
  Age: 94 Year
  Sex: Male

DRUGS (4)
  1. FUNGUARD (MICAFUNGIN) INJECTION [Suspect]
     Indication: PYREXIA
     Dosage: 75.00 MG, UID/QD, IV DRIP
     Route: 041
     Dates: start: 20050522, end: 20050524
  2. TARGOCID [Suspect]
     Dosage: 200.00 MG, , IV DRIP, SEE IMAGE
     Route: 041
     Dates: start: 20050520, end: 20050522
  3. TARGOCID [Suspect]
     Dosage: 200.00 MG, , IV DRIP, SEE IMAGE
     Route: 041
     Dates: start: 20050523, end: 20050524
  4. MODACIN (CEFTAZIDIME) INJECTION [Suspect]
     Dosage: 1.00 G, IV DRIP
     Route: 041
     Dates: start: 20050518, end: 20050525

REACTIONS (2)
  - INTERSTITIAL LUNG DISEASE [None]
  - RASH [None]
